FAERS Safety Report 7027430-6 (Version None)
Quarter: 2010Q3

REPORT INFORMATION
  Report Type: 
  Country: None (occurrence: None)
  Receive Date: 20100930
  Receipt Date: 20100917
  Transmission Date: 20110219
  Serious: Yes (Hospitalization)
  Sender: FDA-Public Use
  Company Number: 2010S1000760

PATIENT
  Age: 35 Year
  Sex: Female
  Weight: 45.9 kg

DRUGS (3)
  1. LIVALO [Suspect]
     Indication: HYPERCHOLESTEROLAEMIA
     Dosage: 1 MG; 1X; PO
     Route: 048
     Dates: start: 20100713, end: 20100805
  2. LIVALO [Suspect]
     Indication: LOW DENSITY LIPOPROTEIN INCREASED
     Dosage: 1 MG; 1X; PO
     Route: 048
     Dates: start: 20100713, end: 20100805
  3. CALONAL [Concomitant]

REACTIONS (4)
  - HENOCH-SCHONLEIN PURPURA [None]
  - LEUKOCYTOCLASTIC VASCULITIS [None]
  - OEDEMA PERIPHERAL [None]
  - PYREXIA [None]
